FAERS Safety Report 4320295-2 (Version None)
Quarter: 2004Q1

REPORT INFORMATION
  Report Type: 
  Country: None (occurrence: None)
  Receive Date: 20040317
  Receipt Date: 20040310
  Transmission Date: 20041129
  Serious: Yes (Death)
  Sender: FDA-Public Use
  Company Number: 2004IC000045

PATIENT
  Age: 58 Year
  Sex: Male

DRUGS (10)
  1. FLUOROURACIL [Suspect]
     Indication: LIP AND/OR ORAL CAVITY CANCER
     Dosage: 1100 MG; INTRAVENOUS
     Route: 042
     Dates: start: 20031126, end: 20031130
  2. MS CONTIN [Concomitant]
  3. BLOPRES [Concomitant]
  4. CINALONG [Concomitant]
  5. COMELIAN [Concomitant]
  6. BEZAFIBRATE [Concomitant]
  7. ALLOPURINOL AND PREPARATIONS [Concomitant]
  8. LOXONIN [Concomitant]
  9. VOLTAREN [Concomitant]
  10. OSTELUC [Concomitant]

REACTIONS (3)
  - DISSEMINATED INTRAVASCULAR COAGULATION [None]
  - INTERSTITIAL LUNG DISEASE [None]
  - RESPIRATORY FAILURE [None]
